FAERS Safety Report 25776409 (Version 1)
Quarter: 2025Q3

REPORT INFORMATION
  Report Type: Spontaneous
  Country: US (occurrence: US)
  Receive Date: 20250909
  Receipt Date: 20250909
  Transmission Date: 20251020
  Serious: No
  Sender: DOMPE FARMACEUTICI
  Company Number: US-FARMAPROD-202408-3011

PATIENT
  Sex: Female

DRUGS (20)
  1. OXERVATE [Suspect]
     Active Substance: CENEGERMIN-BKBJ
     Indication: Neurotrophic keratopathy
     Route: 047
     Dates: start: 20240812
  2. OXERVATE [Suspect]
     Active Substance: CENEGERMIN-BKBJ
  3. OXERVATE [Suspect]
     Active Substance: CENEGERMIN-BKBJ
  4. OXERVATE [Suspect]
     Active Substance: CENEGERMIN-BKBJ
  5. XIIDRA [Concomitant]
     Active Substance: LIFITEGRAST
  6. ELIQUIS [Concomitant]
     Active Substance: APIXABAN
  7. DIGOXIN [Concomitant]
     Active Substance: DIGOXIN
  8. POTASSIUM CHLORIDE [Concomitant]
     Active Substance: POTASSIUM CHLORIDE
  9. SIMVASTATIN [Concomitant]
     Active Substance: SIMVASTATIN
  10. OMEPRAZOLE [Concomitant]
     Active Substance: OMEPRAZOLE
  11. FUROSEMIDE [Concomitant]
     Active Substance: FUROSEMIDE
  12. AMIODARONE HYDROCHLORIDE [Concomitant]
     Active Substance: AMIODARONE HYDROCHLORIDE
  13. COREG [Concomitant]
     Active Substance: CARVEDILOL
  14. GABAPENTIN [Concomitant]
     Active Substance: GABAPENTIN
  15. TRAZODONE HCL [Concomitant]
     Active Substance: TRAZODONE HYDROCHLORIDE
  16. ZINC 220 [Concomitant]
  17. XANAX [Concomitant]
     Active Substance: ALPRAZOLAM
  18. LEVOTHYROXINE SODIUM [Concomitant]
     Active Substance: LEVOTHYROXINE SODIUM
  19. VITAMIN D-400 [Concomitant]
  20. REFRESH PLUS [Concomitant]
     Active Substance: CARBOXYMETHYLCELLULOSE SODIUM

REACTIONS (7)
  - Eye pain [Recovering/Resolving]
  - Eyelid pain [Unknown]
  - Blister infected [Unknown]
  - Product dose omission issue [Unknown]
  - Ocular discomfort [Recovering/Resolving]
  - Device use issue [Unknown]
  - Intentional product misuse [Unknown]
